FAERS Safety Report 10456533 (Version 1)
Quarter: 2014Q3

REPORT INFORMATION
  Report Type: Spontaneous
  Country: GB (occurrence: None)
  Receive Date: 20140912
  Receipt Date: 20140912
  Transmission Date: 20150326
  Serious: Yes (Hospitalization, Other)
  Sender: FDA-Public Use
  Company Number: FK201403600

PATIENT
  Age: 78 Year
  Sex: Female

DRUGS (14)
  1. ASPIRIN (ACETYLSALICYLIC ACID) [Concomitant]
     Active Substance: ASPIRIN
  2. GTN (GLYCERYL TRINITRATE) [Concomitant]
  3. RAMIPRIL. [Suspect]
     Active Substance: RAMIPRIL
     Indication: PRODUCT USED FOR UNKNOWN INDICATION
     Route: 048
     Dates: end: 20110206
  4. ATORVASTATIN (ATORVASTATIN) [Concomitant]
     Active Substance: ATORVASTATIN
  5. ISOSORBIDE MONONITRATE (ISOSORBIDE MONONITRATE) [Concomitant]
     Active Substance: ISOSORBIDE MONONITRATE
  6. QUININE SULPHATE (QUININE SULFATE) [Concomitant]
  7. OMEPRAZOLE (OMEPRAZOLE) [Concomitant]
     Active Substance: OMEPRAZOLE
  8. TEMAZEPAM (TEMAZEPAM) [Concomitant]
     Active Substance: TEMAZEPAM
  9. FERROUS FUMARATE (FERROUS FUMARATE) [Concomitant]
  10. RANOLAZINE (RANOLAZINE) [Concomitant]
  11. FUROSEMIDE. [Suspect]
     Active Substance: FUROSEMIDE
     Indication: PRODUCT USED FOR UNKNOWN INDICATION
     Route: 048
     Dates: end: 20110206
  12. SERETIDE [Concomitant]
     Active Substance: FLUTICASONE FUROATE\SALMETEROL XINAFOATE
  13. AMLODIPINE [Concomitant]
     Active Substance: AMLODIPINE BESYLATE
  14. MST CONTINUS (MORPHINE SULFATE) [Concomitant]

REACTIONS (6)
  - Decreased appetite [None]
  - Malaise [None]
  - Abdominal pain [None]
  - Lower respiratory tract infection [None]
  - Dyspnoea [None]
  - Renal impairment [None]

NARRATIVE: CASE EVENT DATE: 20110206
